FAERS Safety Report 4519479-X (Version None)
Quarter: 2004Q4

REPORT INFORMATION
  Report Type: 
  Country: None (occurrence: None)
  Receive Date: 20041101
  Receipt Date: 20040824
  Transmission Date: 20050328
  Serious: Yes (Other)
  Sender: FDA-Public Use
  Company Number: HQWYE672931AUG04

PATIENT
  Age: 46 Year
  Sex: Female

DRUGS (1)
  1. PREMARIN [Suspect]
     Indication: HORMONE REPLACEMENT THERAPY
     Dosage: 0.625 MG, ORAL
     Route: 048
     Dates: start: 20040101, end: 20040101

REACTIONS (2)
  - DRUG INEFFECTIVE [None]
  - DYSURIA [None]
